FAERS Safety Report 18193878 (Version 1)
Quarter: 2020Q3

REPORT INFORMATION
  Report Type: Spontaneous
  Country: US (occurrence: US)
  Receive Date: 20200825
  Receipt Date: 20200825
  Transmission Date: 20201103
  Serious: No
  Sender: FDA-Public Use
  Company Number: US-ROCHE-2490922

PATIENT
  Sex: Male

DRUGS (3)
  1. PEGASYS [Suspect]
     Active Substance: PEGINTERFERON ALFA-2A
     Dosage: 47 MCG WEEKLY ONGOING: YES
     Route: 058
     Dates: start: 20191018
  2. PEGASYS [Suspect]
     Active Substance: PEGINTERFERON ALFA-2A
     Indication: POLYCYTHAEMIA VERA
     Dosage: 180 MCG/0.5ML; ONGOING: YES
     Route: 058
     Dates: start: 20191104
  3. PEGASYS [Suspect]
     Active Substance: PEGINTERFERON ALFA-2A
     Route: 058
     Dates: start: 20191018

REACTIONS (3)
  - Fatigue [Unknown]
  - Asthenia [Unknown]
  - Pain [Unknown]
